FAERS Safety Report 17908043 (Version 1)
Quarter: 2020Q2

REPORT INFORMATION
  Report Type: Spontaneous
  Country: US (occurrence: US)
  Receive Date: 20200617
  Receipt Date: 20200617
  Transmission Date: 20200714
  Serious: No
  Sender: FDA-Public Use
  Company Number: US-SA-2020SA154129

PATIENT

DRUGS (2)
  1. DUPIXENT [Suspect]
     Active Substance: DUPILUMAB
     Dosage: 300 MG, Q4W, EVERY 28 DAYS
     Route: 058
     Dates: start: 20200610
  2. DUPIXENT [Suspect]
     Active Substance: DUPILUMAB
     Dosage: 300 MG
     Route: 058
     Dates: start: 2020, end: 2020

REACTIONS (2)
  - Conjunctivitis [Unknown]
  - Off label use [Unknown]

NARRATIVE: CASE EVENT DATE: 20200610
